FAERS Safety Report 26149976 (Version 1)
Quarter: 2025Q4

REPORT INFORMATION
  Report Type: Spontaneous
  Country: CN (occurrence: CN)
  Receive Date: 20251212
  Receipt Date: 20251212
  Transmission Date: 20260117
  Serious: Yes (Death, Hospitalization)
  Sender: MYLAN
  Company Number: CN-MYLANLABS-2025M1105499

PATIENT
  Age: 86 Year
  Sex: Female

DRUGS (3)
  1. AMLODIPINE [Suspect]
     Active Substance: AMLODIPINE BESYLATE
     Indication: Hypertension
     Dosage: 5 MILLIGRAM, QD
  2. AMLODIPINE [Suspect]
     Active Substance: AMLODIPINE BESYLATE
     Indication: Hypertension
     Dosage: 240 MILLIGRAM, INGESTED 48 TABLETS OF AMLODIPINE (A TOTAL OF 240 MG)
  3. INSULIN NOS [Concomitant]
     Active Substance: INSULIN NOS
     Indication: Product used for unknown indication
     Dosage: RECEIVED  VIA MICRO-INFUSION PUMP

REACTIONS (14)
  - Toxicity to various agents [Fatal]
  - Accidental overdose [Fatal]
  - Syncope [Fatal]
  - Fatigue [Fatal]
  - Livedo reticularis [Fatal]
  - Peripheral coldness [Fatal]
  - Hypotension [Fatal]
  - Rales [Fatal]
  - Somnolence [Fatal]
  - Hypocalcaemia [Fatal]
  - Metabolic acidosis [Fatal]
  - Distributive shock [Fatal]
  - Anuria [Fatal]
  - Pulseless electrical activity [Fatal]

NARRATIVE: CASE EVENT DATE: 20240101
